FAERS Safety Report 20931074 (Version 1)
Quarter: 2022Q2

REPORT INFORMATION
  Report Type: Spontaneous
  Country: RU (occurrence: None)
  Receive Date: 20220608
  Receipt Date: 20220608
  Transmission Date: 20220721
  Serious: Yes (Other)
  Sender: FDA-Public Use
  Company Number: RU-ROCHE-3109764

PATIENT
  Age: 68 Year
  Sex: Male

DRUGS (1)
  1. ATEZOLIZUMAB [Suspect]
     Active Substance: ATEZOLIZUMAB
     Indication: Transitional cell carcinoma
     Route: 065
     Dates: start: 202109

REACTIONS (1)
  - Metastatic carcinoma of the bladder [Unknown]

NARRATIVE: CASE EVENT DATE: 20220401
